FAERS Safety Report 25076003 (Version 1)
Quarter: 2025Q1

REPORT INFORMATION
  Report Type: Spontaneous
  Country: CN (occurrence: CN)
  Receive Date: 20250313
  Receipt Date: 20250313
  Transmission Date: 20250408
  Serious: Yes (Hospitalization)
  Sender: PAREXEL
  Company Number: CN-SHANGHAI JUNSHI BIOSCIENCES CO., LTD.-CN2025013293

PATIENT

DRUGS (3)
  1. TORIPALIMAB [Suspect]
     Active Substance: TORIPALIMAB
     Indication: Nasopharyngeal cancer
     Dosage: 240 MG, EVERY 21 DAYS
     Route: 041
     Dates: start: 20250219, end: 20250219
  2. GEMCITABINE HYDROCHLORIDE [Suspect]
     Active Substance: GEMCITABINE HYDROCHLORIDE
     Indication: Nasopharyngeal cancer
     Dosage: 1100 MG, EVERY 21 DAYS
     Route: 041
     Dates: start: 20250219, end: 20250219
  3. CISPLATIN [Suspect]
     Active Substance: CISPLATIN
     Indication: Nasopharyngeal cancer
     Dosage: 40 MG (THREE TIMES EVERY 21 DAYS)
     Route: 041
     Dates: start: 20250219, end: 20250221

REACTIONS (1)
  - Myelosuppression [Unknown]

NARRATIVE: CASE EVENT DATE: 20250224
